FAERS Safety Report 4540387-2 (Version None)
Quarter: 2004Q4

REPORT INFORMATION
  Report Type: 
  Country: None (occurrence: None)
  Receive Date: 20041222
  Receipt Date: 20041203
  Transmission Date: 20050328
  Serious: Yes (Other)
  Sender: FDA-Public Use
  Company Number: EWC041241751

PATIENT
  Sex: Female

DRUGS (2)
  1. PERMAX [Suspect]
     Indication: RESTLESS LEGS SYNDROME
  2. ZELNORM [Concomitant]

REACTIONS (4)
  - AORTIC VALVE SCLEROSIS [None]
  - CARDIAC VALVE DISEASE [None]
  - MITRAL VALVE PROLAPSE [None]
  - MITRAL VALVE SCLEROSIS [None]
